FAERS Safety Report 4714469-6 (Version None)
Quarter: 2005Q3

REPORT INFORMATION
  Report Type: 
  Country: None (occurrence: None)
  Receive Date: 20050705
  Receipt Date: 20050429
  Transmission Date: 20060218
  Serious: Yes (Hospitalization, Other)
  Sender: FDA-Public Use
  Company Number: 2004-0007827

PATIENT
  Age: 61 Year
  Sex: Male
  Weight: 58.0604 kg

DRUGS (10)
  1. VIREAD [Suspect]
     Indication: HIV INFECTION
     Dosage: 300 MG, 1 IN 1 D, ORAL
     Route: 048
     Dates: start: 20020401, end: 20030803
  2. KALETRA [Concomitant]
  3. DIDANOSINE [Concomitant]
  4. SAQUINAVIR (SAQUINAVIR) [Concomitant]
  5. ATORVASTATIN CALCIUM [Concomitant]
  6. OMEPRAZOLE [Concomitant]
  7. AZITHROMYCIN [Concomitant]
  8. BACTRIM DS [Concomitant]
  9. QUETIAPINE FUMARATE [Concomitant]
  10. OXCARBAZEPINE (OXCARBAZEPINE) [Concomitant]

REACTIONS (2)
  - RENAL FAILURE ACUTE [None]
  - RENAL TUBULAR NECROSIS [None]
